FAERS Safety Report 6784326-2 (Version None)
Quarter: 2010Q2

REPORT INFORMATION
  Report Type: 
  Country: None (occurrence: None)
  Receive Date: 20100622
  Receipt Date: 20100616
  Transmission Date: 20101027
  Serious: Yes (Hospitalization)
  Sender: FDA-Public Use
  Company Number: AT-AMGEN-UK371256

PATIENT
  Sex: Female

DRUGS (3)
  1. DENOSUMAB [Suspect]
     Indication: OSTEOPOROSIS POSTMENOPAUSAL
     Route: 058
     Dates: start: 20071203
  2. CALCIUM CARBONATE [Concomitant]
  3. VITAMIN D3 [Concomitant]

REACTIONS (1)
  - CEREBELLAR HAEMORRHAGE [None]
